FAERS Safety Report 4802607-6 (Version None)
Quarter: 2005Q4

REPORT INFORMATION
  Report Type: 
  Country: None (occurrence: None)
  Receive Date: 20051014
  Receipt Date: 20050304
  Transmission Date: 20060501
  Serious: Yes (Other)
  Sender: FDA-Public Use
  Company Number: 2005042336

PATIENT
  Age: 81 Year
  Sex: Female
  Weight: 78.0187 kg

DRUGS (10)
  1. NEURONTIN [Suspect]
     Indication: HEADACHE
     Dosage: 200 MG (100 MG,2 IN 1 D), ORAL
     Route: 048
  2. CLOPIDOGREL BISULFATE [Concomitant]
  3. AMLODIPINE BESYLATE [Concomitant]
  4. VALSARTAN [Concomitant]
  5. EZETIMIBE (EZETIMIBE) [Concomitant]
  6. PRAVASTATIN [Concomitant]
  7. SERTRALINE HCL [Concomitant]
  8. DONEPEZIL HCL [Concomitant]
  9. ALL OTHER THERAPEUTIC PRODUCTS (ALL OTHER THERAPEUTIC PRODUCTS) [Concomitant]
  10. MACROGOL (MACROGOL) [Concomitant]

REACTIONS (2)
  - HEADACHE [None]
  - HYPOACUSIS [None]
